FAERS Safety Report 16162875 (Version 1)
Quarter: 2019Q2

REPORT INFORMATION
  Report Type: Spontaneous
  Country: US (occurrence: US)
  Receive Date: 20190405
  Receipt Date: 20190405
  Transmission Date: 20190711
  Serious: No
  Sender: FDA-Public Use
  Company Number: US-VERTEX PHARMACEUTICALS-2019-002901

PATIENT
  Sex: Male

DRUGS (2)
  1. KALYDECO [Suspect]
     Active Substance: IVACAFTOR
     Indication: CYSTIC FIBROSIS
     Dosage: 150 MG, BID,ORAL WITH FAT CONTAINING FOODS
     Route: 048
     Dates: start: 20180519
  2. CAYSTON [Concomitant]
     Active Substance: AZTREONAM
     Route: 048

REACTIONS (1)
  - Haemoptysis [Not Recovered/Not Resolved]
